FAERS Safety Report 23562672 (Version 1)
Quarter: 2024Q1

REPORT INFORMATION
  Report Type: Spontaneous
  Country: US (occurrence: US)
  Receive Date: 20240226
  Receipt Date: 20240226
  Transmission Date: 20240410
  Serious: No
  Sender: FDA-Public Use
  Company Number: US-SA-SAC20240216001442

PATIENT
  Sex: Male

DRUGS (10)
  1. DUPIXENT [Suspect]
     Active Substance: DUPILUMAB
     Indication: Dermatitis allergic
     Dosage: UNK
     Route: 058
  2. CETIRIZINE HCL [Concomitant]
     Active Substance: CETIRIZINE HYDROCHLORIDE
  3. CITALOPRAM HYDROCHLORIDE [Concomitant]
     Active Substance: CITALOPRAM HYDROCHLORIDE
  4. MIRTAZAPINE [Concomitant]
     Active Substance: MIRTAZAPINE
  5. PANTOPRAZOLE [Concomitant]
     Active Substance: PANTOPRAZOLE
  6. TAMSULOSIN HYDROCHLORIDE [Concomitant]
     Active Substance: TAMSULOSIN HYDROCHLORIDE
  7. PIOGLITAZONE [Concomitant]
     Active Substance: PIOGLITAZONE
  8. SYSTANE (HYPROMELLOSE 2910 (4000 MPA.S)) [Concomitant]
     Active Substance: HYPROMELLOSE 2910 (4000 MPA.S)
  9. TOLTERODINE [Concomitant]
     Active Substance: TOLTERODINE
  10. VITAMIN D3 [Concomitant]
     Active Substance: CHOLECALCIFEROL

REACTIONS (1)
  - Drug ineffective [Unknown]
